FAERS Safety Report 10223457 (Version 4)
Quarter: 2014Q3

REPORT INFORMATION
  Report Type: Spontaneous
  Country: US (occurrence: None)
  Receive Date: 20140605
  Receipt Date: 20140926
  Transmission Date: 20150326
  Serious: Yes (Hospitalization, Other)
  Sender: FDA-Public Use
  Company Number: 2014RT000038

PATIENT
  Age: 19 Year
  Sex: Female
  Weight: 53.1 kg

DRUGS (13)
  1. METFORMIN [Concomitant]
     Active Substance: METFORMIN HYDROCHLORIDE
  2. PREDNISONE (PREDNISONE) [Concomitant]
     Active Substance: PREDNISONE
  3. ZANTAC [Concomitant]
     Active Substance: RANITIDINE HYDROCHLORIDE
  4. ZOFRAN  (ONDANSETRON) [Concomitant]
  5. CLARITIN (GLICLAZIDE) [Concomitant]
     Active Substance: GLICLAZIDE
  6. CELLCEPT [Concomitant]
     Active Substance: MYCOPHENOLATE MOFETIL\MYCOPHENOLATE MOFETIL HYDROCHLORIDE
  7. LOPRESSOR [Concomitant]
     Active Substance: METOPROLOL TARTRATE
  8. SYNTHROID [Concomitant]
     Active Substance: LEVOTHYROXINE SODIUM
  9. PROCYSBI DELAYED-RELEASE [Suspect]
     Active Substance: CYSTEAMINE BITARTRATE
     Indication: CYSTINOSIS
     Route: 048
  10. CYSTAGON (MERCAPTAMINE BITARTRATE) [Concomitant]
  11. PROCYSBI DELAYED-RELEASE [Suspect]
     Active Substance: CYSTEAMINE BITARTRATE
     Indication: AMINO ACID LEVEL ABNORMAL
     Route: 048
  12. PROGRAF [Concomitant]
     Active Substance: TACROLIMUS\TACROLIMUS ANHYDROUS
  13. CYSTARAN (MERCAPTAMINE HYDROCHLORIDE) [Concomitant]

REACTIONS (9)
  - Viral infection [None]
  - Diarrhoea [None]
  - Blood creatinine increased [None]
  - Laboratory test abnormal [None]
  - Blood alkaline phosphatase increased [None]
  - Vomiting [None]
  - Dehydration [None]
  - Kidney transplant rejection [None]
  - Nausea [None]

NARRATIVE: CASE EVENT DATE: 20140326
